FAERS Safety Report 4380404-6 (Version None)
Quarter: 2004Q2

REPORT INFORMATION
  Report Type: 
  Country: None (occurrence: None)
  Receive Date: 20040617
  Receipt Date: 20040617
  Transmission Date: 20050107
  Serious: No
  Sender: FDA-Public Use
  Company Number: None

PATIENT

DRUGS (1)
  1. DEPAKOTE [Suspect]
     Dosage: TAB

REACTIONS (5)
  - DIZZINESS [None]
  - HEADACHE [None]
  - PHARMACEUTICAL PRODUCT COMPLAINT [None]
  - SENSORY DISTURBANCE [None]
  - VISION BLURRED [None]
